FAERS Safety Report 17734017 (Version 1)
Quarter: 2020Q2

REPORT INFORMATION
  Report Type: Spontaneous
  Country: TR (occurrence: TR)
  Receive Date: 20200501
  Receipt Date: 20200501
  Transmission Date: 20200714
  Serious: Yes (Hospitalization)
  Sender: FDA-Public Use
  Company Number: TR-OXFORD PHARMACEUTICALS, LLC-2020OXF00058

PATIENT
  Age: 54 Year
  Sex: Female

DRUGS (3)
  1. CAPTOPRIL. [Suspect]
     Active Substance: CAPTOPRIL
     Dosage: 1000 MG
     Route: 048
  2. AMLODIPINE [Suspect]
     Active Substance: AMLODIPINE BESYLATE
     Dosage: 300 MG
     Route: 048
  3. DOXAZOSIN [Suspect]
     Active Substance: DOXAZOSIN MESYLATE
     Dosage: 120 MG
     Route: 048

REACTIONS (3)
  - Intentional overdose [Recovered/Resolved]
  - Haemodynamic instability [Recovered/Resolved]
  - Toxicity to various agents [Recovered/Resolved]
